FAERS Safety Report 13567912 (Version 1)
Quarter: 2017Q2

REPORT INFORMATION
  Report Type: Report from Study
  Country: None (occurrence: BE)
  Receive Date: 20170522
  Receipt Date: 20170522
  Transmission Date: 20170830
  Serious: Yes (Life-Threatening, Other)
  Sender: FDA-Public Use
  Company Number: BE-ABBVIE-17K-013-1981228-00

PATIENT
  Sex: Female

DRUGS (1)
  1. HUMIRA [Suspect]
     Active Substance: ADALIMUMAB
     Indication: PRODUCT USED FOR UNKNOWN INDICATION
     Route: 058
     Dates: start: 2012

REACTIONS (7)
  - Intestinal resection [Unknown]
  - Condition aggravated [Unknown]
  - Abdominal pain upper [Unknown]
  - Abscess intestinal [Unknown]
  - Pneumonia [Unknown]
  - Disease complication [Unknown]
  - Diarrhoea [Unknown]
